FAERS Safety Report 20701287 (Version 4)
Quarter: 2022Q2

REPORT INFORMATION
  Report Type: Spontaneous
  Country: JP (occurrence: JP)
  Receive Date: 20220412
  Receipt Date: 20220623
  Transmission Date: 20220721
  Serious: Yes (Hospitalization, Other)
  Sender: FDA-Public Use
  Company Number: JP-UCBJ-CD202202856UCBPHAPROD

PATIENT
  Age: 79 Year
  Sex: Male
  Weight: 64 kg

DRUGS (16)
  1. VIMPAT [Suspect]
     Active Substance: LACOSAMIDE
     Indication: Partial seizures with secondary generalisation
     Dosage: 100MG DAILY
     Route: 048
     Dates: start: 20211125, end: 20211208
  2. VIMPAT [Suspect]
     Active Substance: LACOSAMIDE
     Dosage: 200MG DAILY
     Route: 048
     Dates: start: 20211209, end: 20211228
  3. VIMPAT [Suspect]
     Active Substance: LACOSAMIDE
     Dosage: 300MG DAILY
     Route: 048
     Dates: start: 20211231, end: 20220104
  4. VIMPAT [Suspect]
     Active Substance: LACOSAMIDE
     Dosage: 400MG DAILY
     Route: 048
     Dates: start: 20220105
  5. VIMPAT [Concomitant]
     Active Substance: LACOSAMIDE
     Indication: Partial seizures with secondary generalisation
     Dosage: 75 MILLIGRAM, 2X/DAY (BID)
     Route: 041
     Dates: start: 20211229, end: 20211230
  6. DIAZEPAM [Concomitant]
     Active Substance: DIAZEPAM
     Indication: Partial seizures with secondary generalisation
     Dosage: 5 MILLIGRAM, ONCE DAILY (QD)
     Dates: start: 20211229, end: 20211229
  7. DIAZEPAM [Concomitant]
     Active Substance: DIAZEPAM
     Indication: Status epilepticus
  8. FOSPHENYTOIN SODIUM [Concomitant]
     Active Substance: FOSPHENYTOIN SODIUM
     Indication: Partial seizures with secondary generalisation
     Dosage: 1500 MILLIGRAM, ONCE DAILY (QD)
     Dates: start: 20211229, end: 20211229
  9. FOSPHENYTOIN SODIUM [Concomitant]
     Active Substance: FOSPHENYTOIN SODIUM
     Indication: Status epilepticus
  10. MIDAFRESA [Concomitant]
     Indication: Partial seizures with secondary generalisation
     Dosage: 1500 MILLIGRAM
     Dates: start: 20211229, end: 20211231
  11. MIDAFRESA [Concomitant]
     Indication: Status epilepticus
  12. ZONISAMIDE [Concomitant]
     Active Substance: ZONISAMIDE
     Indication: Partial seizures with secondary generalisation
     Dosage: 100 MILLIGRAM, 2X/DAY (BID)
     Route: 048
     Dates: start: 20211231
  13. ZONISAMIDE [Concomitant]
     Active Substance: ZONISAMIDE
     Indication: Status epilepticus
  14. RISPERIDONE [Concomitant]
     Active Substance: RISPERIDONE
     Indication: Altered state of consciousness
     Dosage: UNK
  15. LEMBOREXANT [Concomitant]
     Active Substance: LEMBOREXANT
     Indication: Altered state of consciousness
     Dosage: UNK
  16. MEMANTINE [Concomitant]
     Active Substance: MEMANTINE
     Indication: Product used for unknown indication
     Dosage: UNK

REACTIONS (5)
  - Status epilepticus [Recovered/Resolved]
  - Altered state of consciousness [Recovered/Resolved]
  - Hemiplegia [Recovered/Resolved]
  - Restlessness [Unknown]
  - Insomnia [Unknown]

NARRATIVE: CASE EVENT DATE: 20211228
